FAERS Safety Report 7373869-9 (Version None)
Quarter: 2011Q1

REPORT INFORMATION
  Report Type: 
  Country: None (occurrence: None)
  Receive Date: 20110325
  Receipt Date: 20110321
  Transmission Date: 20110831
  Serious: No
  Sender: FDA-Public Use
  Company Number: US-PFIZER INC-2011062249

PATIENT
  Sex: Female
  Weight: 67 kg

DRUGS (2)
  1. IBUPROFEN [Concomitant]
     Dosage: UNK
  2. NICOTROL [Suspect]
     Indication: SMOKING CESSATION THERAPY
     Dosage: UNK
     Dates: start: 20110301

REACTIONS (1)
  - DRUG INEFFECTIVE [None]
